FAERS Safety Report 10102266 (Version 1)
Quarter: 2014Q2

REPORT INFORMATION
  Report Type: Spontaneous
  Country: US (occurrence: None)
  Receive Date: 20140423
  Receipt Date: 20140423
  Transmission Date: 20141212
  Serious: No
  Sender: FDA-Public Use
  Company Number: None

PATIENT
  Age: 49 Year
  Sex: Male
  Weight: 96.8 kg

DRUGS (4)
  1. TEMOZOLOMIDE [Suspect]
     Dosage: DAILY FOR 5 DAYS; 2/29/2014-PRESENT
     Route: 048
  2. CARBATROL [Concomitant]
  3. VIMPAT [Concomitant]
  4. ZOFRAN [Concomitant]

REACTIONS (2)
  - Nausea [None]
  - Convulsion [None]
